FAERS Safety Report 15491911 (Version 2)
Quarter: 2018Q4

REPORT INFORMATION
  Report Type: Spontaneous
  Country: FI (occurrence: FI)
  Receive Date: 20181012
  Receipt Date: 20181024
  Transmission Date: 20190205
  Serious: Yes (Other)
  Sender: FDA-Public Use
  Company Number: FI-ROCHE-1271967

PATIENT
  Age: 53 Year
  Sex: Female

DRUGS (8)
  1. XOLAIR [Suspect]
     Active Substance: OMALIZUMAB
     Indication: ASTHMA
     Dosage: VIAL
     Route: 058
     Dates: start: 20110922, end: 20130515
  2. LOSATRIX COMP [Concomitant]
     Route: 065
  3. SINGULAIR [Concomitant]
     Active Substance: MONTELUKAST SODIUM
  4. BISOPROLOL [Concomitant]
     Active Substance: BISOPROLOL
  5. SIMVASTATIN. [Concomitant]
     Active Substance: SIMVASTATIN
  6. SYMBICORT [Concomitant]
     Active Substance: BUDESONIDE\FORMOTEROL FUMARATE DIHYDRATE
     Route: 065
  7. BUVENTOL [Concomitant]
     Route: 065
     Dates: start: 1998
  8. PULMICORT TURBUHALER [Concomitant]
     Active Substance: BUDESONIDE
     Dosage: ONGOING
     Route: 065

REACTIONS (6)
  - Immune system disorder [Unknown]
  - Malaise [Unknown]
  - Oestrogen receptor positive breast cancer [Recovered/Resolved]
  - Tinea pedis [Unknown]
  - Fatigue [Unknown]
  - Tinea infection [Recovering/Resolving]

NARRATIVE: CASE EVENT DATE: 20130606
